FAERS Safety Report 4538357-3 (Version None)
Quarter: 2004Q4

REPORT INFORMATION
  Report Type: 
  Country: None (occurrence: None)
  Receive Date: 20041221
  Receipt Date: 20041213
  Transmission Date: 20050328
  Serious: Yes (Death)
  Sender: FDA-Public Use
  Company Number: 2004AC01021

PATIENT
  Weight: 3.415 kg

DRUGS (6)
  1. LIDOCAINE [Suspect]
     Indication: CONVULSION
     Dosage: 2 MG/KG ONCE IV
     Route: 042
  2. LIDOCAINE [Suspect]
     Indication: CONVULSION
     Dosage: 6 MG/KG/HR IV
     Route: 042
  3. LIDOCAINE [Suspect]
     Indication: CONVULSION
     Dosage: DOSE TAILED OFF
  4. PHENOBARBITAL TAB [Concomitant]
  5. PHENYTOIN [Concomitant]
  6. MIDAZOLAM HCL [Concomitant]

REACTIONS (7)
  - ARRHYTHMIA NEONATAL [None]
  - BRADYCARDIA NEONATAL [None]
  - CARDIAC ARREST NEONATAL [None]
  - CONVULSION NEONATAL [None]
  - ELECTROENCEPHALOGRAM ABNORMAL [None]
  - ENCEPHALOPATHY NEONATAL [None]
  - HEART RATE INCREASED [None]
